FAERS Safety Report 6153449-3 (Version None)
Quarter: 2009Q2

REPORT INFORMATION
  Report Type: 
  Country: None (occurrence: None)
  Receive Date: 20090413
  Receipt Date: 20090410
  Transmission Date: 20091009
  Serious: Yes (Death)
  Sender: FDA-Public Use
  Company Number: US-ASTRAZENECA-2009UW08383

PATIENT
  Age: 52 Year
  Sex: Male
  Weight: 137.4 kg

DRUGS (8)
  1. ATENOLOL [Suspect]
     Indication: HYPERTENSION
     Route: 048
  2. LISINOPRIL AND HYDROCHLOROTHIAZIDE [Suspect]
     Indication: HYPERTENSION
     Dosage: 20 MG / 12.5 MG - 1 TABLET DAILY
     Route: 048
     Dates: start: 20080404, end: 20090201
  3. LORATADINE [Suspect]
     Indication: RHINITIS ALLERGIC
     Route: 048
     Dates: start: 20081031, end: 20090201
  4. OPANA [Suspect]
     Indication: RHEUMATOID ARTHRITIS
     Route: 048
     Dates: start: 20090201, end: 20090201
  5. FLUOXETINE [Suspect]
     Indication: DEPRESSION
     Dates: start: 20071008, end: 20090201
  6. ANDRODERM [Suspect]
     Indication: SLEEP DISORDER
     Route: 061
     Dates: start: 20081031, end: 20090201
  7. FOLIC ACID [Suspect]
     Route: 048
     Dates: start: 20070417, end: 20090201
  8. NABUMETONE [Suspect]
     Indication: ARTHRITIS
     Route: 048
     Dates: start: 20070619, end: 20090201

REACTIONS (1)
  - DEATH [None]
